FAERS Safety Report 5351700-0 (Version None)
Quarter: 2007Q2

REPORT INFORMATION
  Report Type: 
  Country: None (occurrence: None)
  Receive Date: 20070518
  Receipt Date: 20070215
  Transmission Date: 20071010
  Serious: No
  Sender: FDA-Public Use
  Company Number: TPA2007A00402

PATIENT
  Age: 75 Year
  Sex: Male
  Weight: 77.1115 kg

DRUGS (6)
  1. ROZEREM [Suspect]
     Indication: INSOMNIA
     Dosage: 8 MG, QHS, PER ORAL
     Route: 048
     Dates: start: 20061201, end: 20061201
  2. ROZEREM [Suspect]
     Indication: INSOMNIA
     Dosage: 8 MG, QHS, PER ORAL
     Route: 048
     Dates: start: 20070201, end: 20070201
  3. AMBIEN [Concomitant]
  4. AVODART [Concomitant]
  5. LIPITOR [Concomitant]
  6. GEMFIBROZIL [Concomitant]

REACTIONS (1)
  - INITIAL INSOMNIA [None]
